FAERS Safety Report 10541473 (Version 3)
Quarter: 2015Q1

REPORT INFORMATION
  Report Type: Report from Study
  Country: SE (occurrence: SE)
  Receive Date: 20141015
  Receipt Date: 20150105
  Transmission Date: 20150720
  Serious: Yes (Death, Hospitalization, Other)
  Sender: FDA-Public Use
  Company Number: SE-MYLANLABS-2014M1007275

PATIENT
  Age: 74 Year
  Sex: Female
  Weight: 52 kg

DRUGS (29)
  1. FUROSEMIDE. [Concomitant]
     Active Substance: FUROSEMIDE
     Indication: DIURETIC THERAPY
     Dates: start: 20120830
  2. CYTARABINE. [Suspect]
     Active Substance: CYTARABINE
     Dosage: 2.8 G, CYCLE
     Route: 042
     Dates: start: 20130611
  3. PARACETAMOL [Concomitant]
     Active Substance: ACETAMINOPHEN
     Indication: PAIN
  4. VALACICLOVIR [Concomitant]
     Active Substance: VALACYCLOVIR HYDROCHLORIDE
     Indication: PROPHYLAXIS
     Dates: start: 20120828
  5. MOVICOL                            /01749801/ [Concomitant]
     Indication: CONSTIPATION PROPHYLAXIS
     Dates: start: 20120824
  6. LORAZEPAM. [Concomitant]
     Active Substance: LORAZEPAM
     Indication: ANTIEMETIC SUPPORTIVE CARE
     Dates: start: 20130614
  7. PREDNISOLONE. [Concomitant]
     Active Substance: PREDNISOLONE
     Indication: PRODUCT USED FOR UNKNOWN INDICATION
     Route: 061
     Dates: start: 2012
  8. CYTARABINE. [Suspect]
     Active Substance: CYTARABINE
     Dosage: 2.8 G, CYCLE
     Route: 042
     Dates: start: 20130507, end: 20130508
  9. FLUDARABINE [Suspect]
     Active Substance: FLUDARABINE PHOSPHATE
     Dosage: 40 MG, CYCLE
     Route: 042
     Dates: start: 20130508, end: 20130512
  10. MORPHINE [Concomitant]
     Active Substance: MORPHINE
     Indication: OSTEOARTHRITIS
  11. PARACETAMOL [Concomitant]
     Active Substance: ACETAMINOPHEN
     Indication: OSTEOARTHRITIS
  12. OMEPRAZOL                          /00661201/ [Concomitant]
     Active Substance: OMEPRAZOLE
     Indication: PROPHYLAXIS
     Dates: start: 20120827
  13. ALLOPURINOL                        /00003302/ [Concomitant]
     Active Substance: ALLOPURINOL
     Indication: ANTIBIOTIC PROPHYLAXIS
     Dates: start: 20130506, end: 20130513
  14. TOBRAMYCIN. [Concomitant]
     Active Substance: TOBRAMYCIN
     Indication: FEBRILE NEUTROPENIA
     Dates: start: 20130521, end: 20130521
  15. FLUDARABINE [Suspect]
     Active Substance: FLUDARABINE PHOSPHATE
     Dosage: 40 MG, CYCLE
     Route: 042
     Dates: start: 20130612
  16. FLUDARABINE [Suspect]
     Active Substance: FLUDARABINE PHOSPHATE
     Indication: ACUTE LYMPHOCYTIC LEUKAEMIA
  17. POSTAFEN                           /00072802/ [Concomitant]
     Indication: ANTIEMETIC SUPPORTIVE CARE
     Dates: start: 2012
  18. ONDANSETRON [Concomitant]
     Active Substance: ONDANSETRON
     Indication: PROPHYLAXIS OF NAUSEA AND VOMITING
     Dates: start: 20130506, end: 20130512
  19. FILGRASTIM [Suspect]
     Active Substance: FILGRASTIM
     Indication: ACUTE LYMPHOCYTIC LEUKAEMIA
     Route: 058
     Dates: start: 20130625
  20. MORPHINE [Concomitant]
     Active Substance: MORPHINE
     Indication: PAIN
  21. FLUCONAZOLE. [Concomitant]
     Active Substance: FLUCONAZOLE
     Indication: PROPHYLAXIS
     Dates: start: 20120827
  22. SODIUM CHLORIDE. [Concomitant]
     Active Substance: SODIUM CHLORIDE
     Indication: PROPHYLAXIS
     Dates: start: 20130506, end: 20130512
  23. MORPHINE [Concomitant]
     Active Substance: MORPHINE
     Dates: start: 2012
  24. PARACETAMOL [Concomitant]
     Active Substance: ACETAMINOPHEN
     Dates: start: 2012
  25. OXASCAND [Concomitant]
     Active Substance: OXAZEPAM
     Indication: SEDATIVE THERAPY
     Dates: start: 2012
  26. ROPINIROLE. [Concomitant]
     Active Substance: ROPINIROLE
     Indication: PARKINSON^S DISEASE
     Dates: start: 20111001
  27. SULFAMETOXAZOL MED TRIMETOPRIM [Concomitant]
     Indication: PROPHYLAXIS
     Dates: start: 20120904
  28. CIPROFLOXACIN. [Concomitant]
     Active Substance: CIPROFLOXACIN
     Indication: INFECTION PROPHYLAXIS
     Dates: start: 20130513, end: 20130520
  29. CEFTAZIDIM [Concomitant]
     Active Substance: CEFTAZIDIME
     Indication: FEBRILE NEUTROPENIA
     Dates: start: 20130521, end: 20130527

REACTIONS (6)
  - Disease progression [Fatal]
  - Thrombocytopenia [Unknown]
  - Neutropenic sepsis [Recovered/Resolved]
  - Febrile neutropenia [Recovered/Resolved]
  - Leukopenia [Unknown]
  - Streptococcal infection [Unknown]

NARRATIVE: CASE EVENT DATE: 20130520
